FAERS Safety Report 16168321 (Version 3)
Quarter: 2019Q2

REPORT INFORMATION
  Report Type: Spontaneous
  Country: ES (occurrence: ES)
  Receive Date: 20190408
  Receipt Date: 20190420
  Transmission Date: 20190711
  Serious: Yes (Death, Other)
  Sender: FDA-Public Use
  Company Number: PHHY2019ES079562

PATIENT
  Age: 34 Year
  Sex: Female

DRUGS (2)
  1. REVOLADE [Suspect]
     Active Substance: ELTROMBOPAG
     Indication: IMMUNE THROMBOCYTOPENIC PURPURA
     Dosage: 25 MG, Q48H
     Route: 065
     Dates: start: 20180323, end: 201901
  2. REVOLADE [Suspect]
     Active Substance: ELTROMBOPAG
     Dosage: 25 MG, Q24H
     Route: 065
     Dates: start: 201901, end: 20190206

REACTIONS (15)
  - Nausea [Unknown]
  - Venous thrombosis [Unknown]
  - Cerebral haemorrhage [Unknown]
  - Brain oedema [Unknown]
  - Vomiting [Unknown]
  - Cerebral venous thrombosis [Fatal]
  - Coma [Unknown]
  - Cerebral ventricle collapse [Unknown]
  - Thrombocytopenia [Unknown]
  - Brain contusion [Unknown]
  - Subarachnoid haemorrhage [Unknown]
  - Disease recurrence [Unknown]
  - Dizziness [Unknown]
  - Loss of consciousness [Unknown]
  - Hypoxic-ischaemic encephalopathy [Unknown]

NARRATIVE: CASE EVENT DATE: 201901
